FAERS Safety Report 5486761-1 (Version None)
Quarter: 2007Q4

REPORT INFORMATION
  Report Type: 
  Country: None (occurrence: None)
  Receive Date: 20071016
  Receipt Date: 20071015
  Transmission Date: 20080405
  Serious: Yes (Congenital Anomaly)
  Sender: FDA-Public Use
  Company Number: A0687689A

PATIENT
  Age: 1 Year
  Sex: Female

DRUGS (12)
  1. FLOVENT [Suspect]
     Indication: ASTHMA
     Dosage: 2PUFF PER DAY
     Route: 055
     Dates: start: 20060101
  2. ATIVAN [Concomitant]
  3. LEVOTHYROXINE SODIUM [Concomitant]
  4. POTASSIUM CHLORIDE [Concomitant]
  5. PREVACID [Concomitant]
  6. ALBUTEROL [Concomitant]
  7. CALCIUM CARBONATE [Concomitant]
  8. FOLATE [Concomitant]
  9. BUMEX [Concomitant]
  10. MAGNESIUM SULFATE [Concomitant]
  11. SOTALOL HYDROCHLORIDE [Concomitant]
  12. REGLAN [Concomitant]

REACTIONS (1)
  - CUSHING'S SYNDROME [None]
